FAERS Safety Report 8328261-7 (Version None)
Quarter: 2012Q2

REPORT INFORMATION
  Report Type: 
  Country: None (occurrence: None)
  Receive Date: 20120502
  Receipt Date: 20120426
  Transmission Date: 20120825
  Serious: Yes (Hospitalization, Other)
  Sender: FDA-Public Use
  Company Number: JP-ASTELLAS-2012JP003686

PATIENT
  Age: 6 Year
  Sex: Male

DRUGS (7)
  1. PROGRAF [Suspect]
     Dosage: 0.5 MG, UNKNOWN/D
     Route: 048
  2. PREDNISOLONE [Concomitant]
     Dosage: 2 MG/KG, UNKNOWN/D
     Route: 065
  3. PROGRAF [Suspect]
     Route: 048
  4. BUSULFAN [Concomitant]
     Indication: BONE MARROW CONDITIONING REGIMEN
     Dosage: UNK
     Route: 065
  5. METHOTREXATE [Concomitant]
     Indication: PROPHYLAXIS AGAINST GRAFT VERSUS HOST DISEASE
     Route: 065
  6. MELPHALAN HYDROCHLORIDE [Concomitant]
     Indication: BONE MARROW CONDITIONING REGIMEN
     Dosage: UNK
     Route: 065
  7. PROGRAF [Suspect]
     Indication: PROPHYLAXIS AGAINST GRAFT VERSUS HOST DISEASE
     Route: 042

REACTIONS (5)
  - NEPHROTIC SYNDROME [None]
  - ACUTE GRAFT VERSUS HOST DISEASE [None]
  - VIRAL HAEMORRHAGIC CYSTITIS [None]
  - DRUG INEFFECTIVE [None]
  - CHRONIC GRAFT VERSUS HOST DISEASE [None]
